FAERS Safety Report 6786298-3 (Version None)
Quarter: 2010Q2

REPORT INFORMATION
  Report Type: 
  Country: None (occurrence: None)
  Receive Date: 20100623
  Receipt Date: 20100616
  Transmission Date: 20101027
  Serious: Yes (Hospitalization)
  Sender: FDA-Public Use
  Company Number: KR-ROCHE-706744

PATIENT
  Sex: Female
  Weight: 68 kg

DRUGS (15)
  1. BEVACIZUMAB [Suspect]
     Indication: BREAST CANCER
     Dosage: FORM: VIALS; DOSE LEVEL: 15 MG/KG; LAST DOSE PRIOR TO SAE: 17 MAY 2010.
     Route: 042
     Dates: start: 20100128
  2. TRASTUZUMAB [Suspect]
     Indication: BREAST CANCER
     Dosage: LOADING DOSE.
     Route: 042
     Dates: start: 20100128
  3. TRASTUZUMAB [Suspect]
     Dosage: FORM: VIALS; LAST DOSE PRIOR TO SAE: 17 MAY 2010. MAINTAINANCE DOSE: 408 MG
     Route: 042
     Dates: start: 20100218
  4. DOCETAXEL [Suspect]
     Indication: BREAST CANCER
     Dosage: DOSE LEVEL: 60 MG/M2; FORM: VIALS; LAST DOSE PRIOR TO SAE: 17 MAY 2010.
     Route: 042
     Dates: start: 20100128
  5. CARBOPLATIN [Suspect]
     Indication: BREAST CANCER
     Dosage: DOSE LEVEL: 5 AUC; FORM: VIALS; LAST DOSE PRIOR TO SAE: 17 MAY 2010.
     Route: 042
     Dates: start: 20100128
  6. LEXAPRO [Concomitant]
     Dates: start: 20100317, end: 20100421
  7. XANAX [Concomitant]
     Dates: start: 20100317, end: 20100421
  8. MACPERAN [Concomitant]
     Dates: start: 20100128, end: 20100421
  9. MACPERAN [Concomitant]
     Dates: start: 20100529
  10. TAGAMET [Concomitant]
     Dates: start: 20100128, end: 20100421
  11. TAGAMET [Concomitant]
     Dates: start: 20100529
  12. DIAZEPAM [Concomitant]
     Dates: start: 20100128, end: 20100421
  13. PARIET [Concomitant]
     Dates: start: 20100208, end: 20100421
  14. PARIET [Concomitant]
     Dates: start: 20100529
  15. JANUMET [Concomitant]
     Dates: start: 20100526

REACTIONS (1)
  - HAEMORRHOIDS [None]
